FAERS Safety Report 19982685 (Version 3)
Quarter: 2022Q1

REPORT INFORMATION
  Report Type: Report from Study
  Country: EG (occurrence: EG)
  Receive Date: 20211021
  Receipt Date: 20220113
  Transmission Date: 20220423
  Serious: Yes (Other)
  Sender: FDA-Public Use
  Company Number: EG-BAYER-2021A229626

PATIENT

DRUGS (3)
  1. EYLEA [Suspect]
     Active Substance: AFLIBERCEPT
     Indication: Age-related macular degeneration
     Dosage: THE TOTAL NO. OF EYLEA INJECTIONS IS 10 (9 RIGHT EYE, 1 LEFT EYE)
     Route: 031
     Dates: start: 20201027
  2. EYLEA [Suspect]
     Active Substance: AFLIBERCEPT
     Indication: Retinal haemorrhage
     Dosage: 1 DF, ONCE, RIGHT EYE, LAST DOSE TAKEN
     Route: 031
     Dates: start: 20220102, end: 20220102
  3. EYLEA [Suspect]
     Active Substance: AFLIBERCEPT
     Dosage: 1 DF, ONCE, LEFT EYE
     Route: 031
     Dates: start: 20211013, end: 20211013

REACTIONS (3)
  - Macular fibrosis [Not Recovered/Not Resolved]
  - Age-related macular degeneration [Not Recovered/Not Resolved]
  - Product prescribing issue [Not Recovered/Not Resolved]

NARRATIVE: CASE EVENT DATE: 20210801
